FAERS Safety Report 6305823-X (Version None)
Quarter: 2009Q3

REPORT INFORMATION
  Report Type: 
  Country: None (occurrence: None)
  Receive Date: 20090812
  Receipt Date: 20090804
  Transmission Date: 20100115
  Serious: Yes (Death)
  Sender: FDA-Public Use
  Company Number: BR-ORACLE-2009S1000297

PATIENT
  Age: 83 Year
  Sex: Male
  Weight: 55 kg

DRUGS (9)
  1. CUBICIN [Suspect]
     Indication: STAPHYLOCOCCAL INFECTION
     Route: 042
     Dates: start: 20090720, end: 20090722
  2. CUBICIN [Suspect]
     Indication: ENDOCARDITIS
     Route: 042
     Dates: start: 20090720, end: 20090722
  3. CUBICIN [Suspect]
     Route: 042
     Dates: start: 20090720, end: 20090722
  4. CUBICIN [Suspect]
     Route: 042
     Dates: start: 20090720, end: 20090722
  5. NOREPINEPHRINE BITARTRATE [Concomitant]
     Indication: DRUG USE FOR UNKNOWN INDICATION
  6. VASOPRESSIN INJECTION [Concomitant]
     Indication: DRUG USE FOR UNKNOWN INDICATION
  7. MIDAZOLAM HCL [Concomitant]
     Indication: DRUG USE FOR UNKNOWN INDICATION
  8. ALBUMIN (HUMAN) [Concomitant]
     Indication: DRUG USE FOR UNKNOWN INDICATION
  9. SODIUM BICARBONATE [Concomitant]
     Indication: DRUG USE FOR UNKNOWN INDICATION

REACTIONS (2)
  - POST PROCEDURAL COMPLICATION [None]
  - SEPSIS [None]
